FAERS Safety Report 13335250 (Version 1)
Quarter: 2017Q1

REPORT INFORMATION
  Report Type: Spontaneous
  Country: US (occurrence: US)
  Receive Date: 20170314
  Receipt Date: 20170314
  Transmission Date: 20170428
  Serious: No
  Sender: FDA-Public Use
  Company Number: US-GALDERMA-US16000708

PATIENT
  Age: 20 Year
  Sex: Male

DRUGS (4)
  1. CERAVE FACIAL CLEANSER [Concomitant]
     Indication: THERAPEUTIC SKIN CARE TOPICAL
     Route: 061
  2. NEUTRAGENA SALICYLIC ACID WASH [Concomitant]
     Indication: THERAPEUTIC SKIN CARE TOPICAL
     Dosage: 2%
     Route: 061
     Dates: start: 20151218
  3. TRETINOIN 0.05% [Concomitant]
     Dosage: 0.05%
     Route: 061
     Dates: start: 20151224
  4. TRI-LUMA [Suspect]
     Active Substance: FLUOCINOLONE ACETONIDE\HYDROQUINONE\TRETINOIN
     Indication: SCAR
     Route: 061
     Dates: start: 201601, end: 201601

REACTIONS (3)
  - Intentional product misuse [Recovered/Resolved]
  - Application site erythema [Recovered/Resolved]
  - Wrong technique in product usage process [Recovered/Resolved]

NARRATIVE: CASE EVENT DATE: 201601
